FAERS Safety Report 17836513 (Version 1)
Quarter: 2020Q2

REPORT INFORMATION
  Report Type: Spontaneous
  Country: CA (occurrence: CA)
  Receive Date: 20200529
  Receipt Date: 20200529
  Transmission Date: 20200714
  Serious: Yes (Life-Threatening, Hospitalization, Other)
  Sender: FDA-Public Use
  Company Number: CA-TEVA-2020-CA-1240618

PATIENT
  Age: 20 Year
  Sex: Female

DRUGS (2)
  1. METAMFETAMINE HYDROCHLORIDE [Suspect]
     Active Substance: METHAMPHETAMINE HYDROCHLORIDE
     Indication: PRODUCT USED FOR UNKNOWN INDICATION
     Route: 065
  2. FENTANYL. [Suspect]
     Active Substance: FENTANYL
     Indication: PRODUCT USED FOR UNKNOWN INDICATION
     Route: 065

REACTIONS (13)
  - Heart rate increased [Unknown]
  - Drug abuse [Not Recovered/Not Resolved]
  - Overdose [Not Recovered/Not Resolved]
  - Blood pressure decreased [Unknown]
  - Incorrect route of product administration [Unknown]
  - Loss of consciousness [Unknown]
  - Communication disorder [Not Recovered/Not Resolved]
  - Intentional overdose [Unknown]
  - Respiratory rate decreased [Unknown]
  - Staphylococcal infection [Unknown]
  - Somnolence [Not Recovered/Not Resolved]
  - Off label use [Unknown]
  - Dysstasia [Not Recovered/Not Resolved]
